FAERS Safety Report 7475755-2 (Version None)
Quarter: 2011Q2

REPORT INFORMATION
  Report Type: 
  Country: None (occurrence: None)
  Receive Date: 20110512
  Receipt Date: 20110506
  Transmission Date: 20111010
  Serious: Yes (Hospitalization)
  Sender: FDA-Public Use
  Company Number: PHHY2011IT39101

PATIENT
  Sex: Female
  Weight: 66 kg

DRUGS (1)
  1. CERTICAN [Suspect]
     Indication: HEART TRANSPLANT REJECTION
     Dosage: 0.25 MG, BID
     Route: 048
     Dates: start: 20070927

REACTIONS (1)
  - HYPERPYREXIA [None]
